FAERS Safety Report 6121235-6 (Version None)
Quarter: 2009Q1

REPORT INFORMATION
  Report Type: 
  Country: None (occurrence: None)
  Receive Date: 20090317
  Receipt Date: 20090316
  Transmission Date: 20090719
  Serious: Yes (Life-Threatening, Hospitalization, Other)
  Sender: FDA-Public Use
  Company Number: US-RB-011761-09

PATIENT
  Age: 23 Year
  Sex: Male

DRUGS (3)
  1. SUBOXONE [Suspect]
     Dosage: DOSE UNKNOWN
     Route: 060
     Dates: start: 20090101
  2. PROZAC [Concomitant]
     Indication: ANXIETY
     Route: 048
     Dates: start: 20090201
  3. XANAX [Suspect]
     Indication: ANXIETY
     Route: 048
     Dates: start: 20090201

REACTIONS (1)
  - DEPRESSED LEVEL OF CONSCIOUSNESS [None]
